FAERS Safety Report 21228371 (Version 1)
Quarter: 2022Q3

REPORT INFORMATION
  Report Type: Spontaneous
  Country: US (occurrence: None)
  Receive Date: 20220818
  Receipt Date: 20220818
  Transmission Date: 20221026
  Serious: Yes (Hospitalization)
  Sender: FDA-Public Use
  Company Number: None

PATIENT
  Age: 21 Year
  Sex: Male
  Weight: 69.1 kg

DRUGS (3)
  1. CISPLATIN [Suspect]
     Active Substance: CISPLATIN
     Dates: end: 20220802
  2. IFOSFAMIDE [Suspect]
     Active Substance: IFOSFAMIDE
     Dates: end: 20220802
  3. TAXOL [Suspect]
     Active Substance: PACLITAXEL
     Dates: end: 20220729

REACTIONS (8)
  - Pyrexia [None]
  - Haematotoxicity [None]
  - Anaemia [None]
  - Thrombocytopenia [None]
  - Febrile neutropenia [None]
  - Proctalgia [None]
  - Haemorrhoids [None]
  - Mucosal inflammation [None]

NARRATIVE: CASE EVENT DATE: 20220807
